FAERS Safety Report 17878597 (Version 2)
Quarter: 2020Q3

REPORT INFORMATION
  Report Type: Spontaneous
  Country: US (occurrence: US)
  Receive Date: 20200610
  Receipt Date: 20200803
  Transmission Date: 20201103
  Serious: Yes (Hospitalization)
  Sender: FDA-Public Use
  Company Number: US-GLOBAL BLOOD THERAPEUTICS INC-US-GBT-20-01365

PATIENT
  Age: 41 Year
  Sex: Male

DRUGS (2)
  1. OXBRYTA [Suspect]
     Active Substance: VOXELOTOR
     Indication: SICKLE CELL ANAEMIA WITH CRISIS
     Route: 048
     Dates: start: 20200505, end: 202005
  2. OXBRYTA [Suspect]
     Active Substance: VOXELOTOR
     Route: 048
     Dates: start: 202005

REACTIONS (7)
  - Nausea [Unknown]
  - Headache [Unknown]
  - Fatigue [Unknown]
  - Coronavirus infection [Unknown]
  - Sickle cell anaemia with crisis [Recovered/Resolved]
  - Therapy non-responder [Unknown]
  - Vomiting [Unknown]

NARRATIVE: CASE EVENT DATE: 2020
